FAERS Safety Report 24059738 (Version 1)
Quarter: 2024Q3

REPORT INFORMATION
  Report Type: Spontaneous
  Country: US (occurrence: None)
  Receive Date: 20240704
  Receipt Date: 20240704
  Transmission Date: 20241017
  Serious: Yes (unspecified)
  Sender: Public
  Company Number: None

PATIENT
  Age: 38 Year
  Sex: Female
  Weight: 48.15 kg

DRUGS (5)
  1. AJOVY [Suspect]
     Active Substance: FREMANEZUMAB-VFRM
     Indication: Migraine
     Dosage: OTHER QUANTITY : 1 INJECTION(S);?OTHER FREQUENCY : 1X MONTHS;?
     Route: 058
     Dates: start: 20240625, end: 20240625
  2. UBRELVY [Concomitant]
     Active Substance: UBROGEPANT
  3. WELLBUTRIN [Concomitant]
     Active Substance: BUPROPION HYDROCHLORIDE
  4. TRULANCE [Concomitant]
     Active Substance: PLECANATIDE
  5. BIOTIN [Concomitant]
     Active Substance: BIOTIN

REACTIONS (8)
  - Dizziness [None]
  - Malaise [None]
  - Neck pain [None]
  - Pain in extremity [None]
  - Abdominal discomfort [None]
  - Abdominal distension [None]
  - Constipation [None]
  - Weight increased [None]

NARRATIVE: CASE EVENT DATE: 20240625
